FAERS Safety Report 4413913-1 (Version None)
Quarter: 2004Q3

REPORT INFORMATION
  Report Type: 
  Country: None (occurrence: None)
  Receive Date: 20040803
  Receipt Date: 20040722
  Transmission Date: 20050211
  Serious: Yes (Other)
  Sender: FDA-Public Use
  Company Number: US-BRISTOL-MYERS SQUIBB COMPANY-12648689

PATIENT
  Age: 16 Year
  Sex: Male

DRUGS (2)
  1. ABILIFY [Suspect]
     Indication: MENTAL DISORDER
     Route: 048
  2. SYMMETREL [Concomitant]

REACTIONS (1)
  - TYMPANIC MEMBRANE PERFORATION [None]
